FAERS Safety Report 13150739 (Version 1)
Quarter: 2017Q1

REPORT INFORMATION
  Report Type: Spontaneous
  Country: BR (occurrence: BR)
  Receive Date: 20170125
  Receipt Date: 20170125
  Transmission Date: 20170428
  Serious: Yes (Hospitalization)
  Sender: FDA-Public Use
  Company Number: BR-GLAXOSMITHKLINE-BR2017GSK004954

PATIENT
  Sex: Male
  Weight: 77 kg

DRUGS (4)
  1. COMBODART [Suspect]
     Active Substance: DUTASTERIDE\TAMSULOSIN
     Indication: BENIGN PROSTATIC HYPERPLASIA
     Dosage: 1 UNK, QD
     Route: 048
  2. SINUSTRAT [Concomitant]
     Route: 048
  3. SELOZOK (METOPROLOL SUCCINATE) [Concomitant]
     Route: 048
  4. CLOPIDOGREL [Concomitant]
     Active Substance: CLOPIDOGREL BISULFATE
     Route: 048

REACTIONS (2)
  - Testicular disorder [Not Recovered/Not Resolved]
  - Catheterisation cardiac [Unknown]
